FAERS Safety Report 8040779-3 (Version None)
Quarter: 2012Q1

REPORT INFORMATION
  Report Type: 
  Country: None (occurrence: None)
  Receive Date: 20120112
  Receipt Date: 20111230
  Transmission Date: 20120608
  Serious: No
  Sender: FDA-Public Use
  Company Number: US-AMGEN-USASP2011069405

PATIENT
  Age: 50 Year
  Sex: Female

DRUGS (2)
  1. TREXALL [Concomitant]
     Dates: start: 20100101
  2. ENBREL [Suspect]
     Indication: RHEUMATOID ARTHRITIS
     Dosage: 50 MG, QWK
     Dates: start: 20111028, end: 20111220

REACTIONS (4)
  - SKIN HAEMORRHAGE [None]
  - KIDNEY INFECTION [None]
  - SKIN FISSURES [None]
  - RASH [None]
